FAERS Safety Report 5372628-6 (Version None)
Quarter: 2007Q2

REPORT INFORMATION
  Report Type: 
  Country: None (occurrence: None)
  Receive Date: 20070615
  Receipt Date: 20060913
  Transmission Date: 20071010
  Serious: Yes (Other)
  Sender: FDA-Public Use
  Company Number: 200610956US

PATIENT
  Age: 60 Year
  Sex: Male
  Weight: 84 kg

DRUGS (5)
  1. LANTUS [Suspect]
     Indication: DIABETES MELLITUS
     Dosage: 55 U QAM
     Dates: start: 20051001, end: 20060126
  2. LANTUS [Suspect]
     Indication: DIABETES MELLITUS
     Dosage: 55 U QAM
     Dates: start: 20060126
  3. NEURONTIN [Concomitant]
  4. LOVASTATIN [Concomitant]
  5. NIFEDIPINE [Concomitant]

REACTIONS (2)
  - BLOOD GLUCOSE INCREASED [None]
  - HYPERGLYCAEMIA [None]
